FAERS Safety Report 7951551-4 (Version None)
Quarter: 2011Q4

REPORT INFORMATION
  Report Type: 
  Country: None (occurrence: None)
  Receive Date: 20111201
  Receipt Date: 20111122
  Transmission Date: 20120403
  Serious: Yes (Hospitalization)
  Sender: FDA-Public Use
  Company Number: GB-ROCHE-1015724

PATIENT
  Age: 55 Year
  Sex: Female
  Weight: 125.3 kg

DRUGS (2)
  1. VEMURAFENIB [Suspect]
     Indication: METASTATIC MALIGNANT MELANOMA
  2. ACETAMINOPHEN AND CODEINE PHOSPHATE [Concomitant]
     Dosage: 8 PER TABLET
     Dates: start: 20111101

REACTIONS (1)
  - SCIATICA [None]
